FAERS Safety Report 9125982 (Version 2)
Quarter: 2013Q3

REPORT INFORMATION
  Report Type: Report from Study
  Country: NL (occurrence: NL)
  Receive Date: 20130121
  Receipt Date: 20130801
  Transmission Date: 20140515
  Serious: No
  Sender: FDA-Public Use
  Company Number: NL-ELI_LILLY_AND_COMPANY-NL201301003787

PATIENT
  Sex: Female

DRUGS (7)
  1. TERIPARATIDE [Suspect]
     Indication: OSTEOPOROSIS
     Dosage: 20 UG, QD
     Route: 058
     Dates: start: 20121220
  2. TERIPARATIDE [Suspect]
     Indication: FRACTURE
  3. AMITRIPTYLINE [Concomitant]
     Dosage: UNK UNK, UNKNOWN
     Route: 065
  4. CANDESARTAN [Concomitant]
     Dosage: UNK, UNKNOWN
     Route: 065
  5. DIAZEPAM [Concomitant]
     Dosage: UNK, UNKNOWN
     Route: 065
  6. SIMVASTATINE [Concomitant]
     Dosage: UNK, UNKNOWN
     Route: 065
  7. STRONTIUM RANELATE [Concomitant]
     Dosage: UNK, UNKNOWN
     Route: 065

REACTIONS (2)
  - Myalgia [Recovering/Resolving]
  - Fracture pain [Recovering/Resolving]
